FAERS Safety Report 7305277-0 (Version None)
Quarter: 2011Q1

REPORT INFORMATION
  Report Type: 
  Country: None (occurrence: None)
  Receive Date: 20110222
  Receipt Date: 20110210
  Transmission Date: 20110831
  Serious: Yes (Hospitalization, Other)
  Sender: FDA-Public Use
  Company Number: US-PFIZER INC-2011030646

PATIENT
  Sex: Female

DRUGS (1)
  1. DEPO-ESTRADIOL [Suspect]
     Dosage: UNK

REACTIONS (10)
  - HEPATITIS C [None]
  - NEPHROLITHIASIS [None]
  - ASTHMA [None]
  - COLITIS ULCERATIVE [None]
  - INJECTION SITE ERYTHEMA [None]
  - INJECTION SITE IRRITATION [None]
  - DYSGEUSIA [None]
  - NAUSEA [None]
  - INFLUENZA LIKE ILLNESS [None]
  - INJECTION SITE NODULE [None]
